FAERS Safety Report 6070721-6 (Version None)
Quarter: 2009Q1

REPORT INFORMATION
  Report Type: 
  Country: None (occurrence: None)
  Receive Date: 20090209
  Receipt Date: 20090127
  Transmission Date: 20090719
  Serious: Yes (Other)
  Sender: FDA-Public Use
  Company Number: DE-ROCHE-599285

PATIENT
  Sex: Male
  Weight: 80 kg

DRUGS (2)
  1. XELODA [Suspect]
     Dosage: TDD REDUCED FROM 4000 MG TO 1000 MG ON AN UNREPORTED DATE
     Route: 048
     Dates: start: 20080612, end: 20080713
  2. XELODA [Suspect]
     Route: 048

REACTIONS (4)
  - ANAEMIA [None]
  - LEUKOPENIA [None]
  - METASTASES TO LIVER [None]
  - NEUTROPENIA [None]
